FAERS Safety Report 12450496 (Version 1)
Quarter: 2016Q2

REPORT INFORMATION
  Report Type: Spontaneous
  Country: CN (occurrence: CN)
  Receive Date: 20160609
  Receipt Date: 20160609
  Transmission Date: 20160815
  Serious: Yes (Death)
  Sender: FDA-Public Use
  Company Number: PHHY2016CN078722

PATIENT
  Age: 80 Year
  Sex: Female
  Weight: 75 kg

DRUGS (1)
  1. ACLASTA [Suspect]
     Active Substance: ZOLEDRONIC ACID
     Indication: PRODUCT USED FOR UNKNOWN INDICATION
     Dosage: 4 MG, QD AT THE DRIPPING SPEED OF 50 DROPS PER MIN
     Route: 041
     Dates: start: 20150706

REACTIONS (12)
  - Tachypnoea [Fatal]
  - Acute kidney injury [Fatal]
  - Hypokalaemia [Fatal]
  - Cyanosis [Fatal]
  - Leukocytosis [Fatal]
  - Haemorrhagic diathesis [Fatal]
  - Chills [Fatal]
  - Angina bullosa haemorrhagica [Fatal]
  - Disseminated intravascular coagulation [Fatal]
  - Thrombocytopenia [Fatal]
  - Hyperpyrexia [Fatal]
  - Vomiting [Fatal]

NARRATIVE: CASE EVENT DATE: 20150707
